FAERS Safety Report 9512366 (Version 3)
Quarter: 2013Q3

REPORT INFORMATION
  Report Type: Report from Study
  Country: US (occurrence: US)
  Receive Date: 20130910
  Receipt Date: 20130923
  Transmission Date: 20140515
  Serious: Yes (Death, Hospitalization)
  Sender: FDA-Public Use
  Company Number: US-009507513-1309USA002019

PATIENT
  Age: 5 Year
  Sex: Male
  Weight: 25.7 kg

DRUGS (2)
  1. VORINOSTAT [Suspect]
     Indication: BRAIN STEM GLIOMA
     Dosage: 230 MG/M2/DOSE ON DAY 1-5 WEEKLY,MAINTAINANCE THERAPY:230MG/M2/DOSE QD (CYCLE 28 DAYS, MAX 12CYCLE)
     Route: 048
     Dates: start: 20130206, end: 20130210
  2. VORINOSTAT [Suspect]
     Dosage: 230 MG/M2/DOSE PO QD
     Route: 048
     Dates: start: 20130815, end: 20130826

REACTIONS (2)
  - Brain stem glioma [Fatal]
  - Depressed level of consciousness [Unknown]
